FAERS Safety Report 4600335-3 (Version None)
Quarter: 2005Q1

REPORT INFORMATION
  Report Type: 
  Country: None (occurrence: None)
  Receive Date: 20050303
  Receipt Date: 20050215
  Transmission Date: 20050727
  Serious: Yes (Death)
  Sender: FDA-Public Use
  Company Number: GBS050216591

PATIENT
  Age: 67 Year
  Sex: Female

DRUGS (7)
  1. FORTEO [Suspect]
     Indication: OSTEOPOROSIS
     Dosage: 20 UG
     Dates: start: 20040501
  2. COLISMETHATE SODIUM [Concomitant]
  3. RAMIPRIL [Concomitant]
  4. PARACETAMOL [Concomitant]
  5. CODEINE PHOSPHATE [Concomitant]
  6. PREDNISOLONE [Concomitant]
  7. FOSAMAX [Concomitant]

REACTIONS (1)
  - BRONCHOPNEUMONIA [None]
